FAERS Safety Report 4722041-7 (Version None)
Quarter: 2005Q3

REPORT INFORMATION
  Report Type: 
  Country: None (occurrence: None)
  Receive Date: 20050722
  Receipt Date: 20050330
  Transmission Date: 20060218
  Serious: Yes (Death, Disabling)
  Sender: FDA-Public Use
  Company Number: US-ROCHE-400261

PATIENT
  Age: 52 Year
  Sex: Female
  Weight: 105.7 kg

DRUGS (12)
  1. XELODA [Suspect]
     Route: 048
     Dates: start: 20050329, end: 20050330
  2. LEXAPRO [Suspect]
     Indication: DRUG USE FOR UNKNOWN INDICATION
     Dosage: DOSAGE REGIMEN REPORTED AS EVERY DAY
     Route: 048
  3. SEROQUEL [Suspect]
     Indication: DRUG USE FOR UNKNOWN INDICATION
     Dosage: DOSAGE REGIMEN REPORTED AS EVERY NIGHT
     Route: 048
  4. METHADONE HCL [Suspect]
     Indication: DRUG USE FOR UNKNOWN INDICATION
     Route: 048
  5. OXALIPLATIN [Concomitant]
  6. AVASTIN [Concomitant]
  7. MEGACE [Concomitant]
     Route: 048
  8. PROTONIX [Concomitant]
     Dosage: DOSAGE REGIMEN REPORTED AS DAILY
  9. SENOKOT [Concomitant]
  10. COLACE [Concomitant]
  11. COMBIVENT [Concomitant]
  12. COMPAZINE SUPPOSITORIES [Concomitant]
     Dosage: DOSAGE REGIMEN REPORTED AS PRN

REACTIONS (4)
  - AMMONIA INCREASED [None]
  - COLON CANCER METASTATIC [None]
  - MENTAL STATUS CHANGES [None]
  - METASTASES TO LIVER [None]
